FAERS Safety Report 13864710 (Version 2)
Quarter: 2017Q3

REPORT INFORMATION
  Report Type: Spontaneous
  Country: JP (occurrence: JP)
  Receive Date: 20170814
  Receipt Date: 20170929
  Transmission Date: 20171127
  Serious: Yes (Life-Threatening)
  Sender: FDA-Public Use
  Company Number: JP-JNJFOC-20170810863

PATIENT
  Age: 75 Year
  Sex: Female

DRUGS (9)
  1. PROGRAF [Concomitant]
     Active Substance: TACROLIMUS\TACROLIMUS ANHYDROUS
     Indication: RHEUMATOID ARTHRITIS
     Dosage: ( AFTER DINNER )
     Route: 048
  2. BETAMETHASONE. [Concomitant]
     Active Substance: BETAMETHASONE
     Dosage: ( AFTER BREAKFAST )
     Route: 048
  3. SULPIRIDE [Concomitant]
     Active Substance: SULPIRIDE
     Dosage: ( AFTER BREAKFAST AND AFTER DINNER )
     Route: 048
  4. SIMPONI [Suspect]
     Active Substance: GOLIMUMAB
     Indication: RHEUMATOID ARTHRITIS
     Route: 058
     Dates: start: 20170724, end: 20170724
  5. LUPRAC [Concomitant]
     Active Substance: TORSEMIDE
     Dosage: ( AFTER BREAKFAST )
     Route: 048
  6. AURANOFIN [Concomitant]
     Active Substance: AURANOFIN
     Indication: RHEUMATOID ARTHRITIS
     Dosage: AFTER BREAKFAST
     Route: 048
  7. FAMOTIDINE. [Concomitant]
     Active Substance: FAMOTIDINE
     Dosage: ( AFTER BREAKFAST )
     Route: 048
  8. ANTAGOSTIN [Concomitant]
     Active Substance: TEPRENONE
     Dosage: ( AFTER BREAKFAST AND AFTER DINNER )
     Route: 048
  9. SLOW-K [Concomitant]
     Active Substance: POTASSIUM CHLORIDE
     Dosage: ( AFTER BREAKFAST )
     Route: 048

REACTIONS (1)
  - Septic shock [Recovered/Resolved]

NARRATIVE: CASE EVENT DATE: 20170727
